FAERS Safety Report 4622562-1 (Version None)
Quarter: 2005Q1

REPORT INFORMATION
  Report Type: 
  Country: None (occurrence: None)
  Receive Date: 20050317
  Receipt Date: 20040831
  Transmission Date: 20050727
  Serious: Yes (Other)
  Sender: FDA-Public Use
  Company Number: PHEH2004US07965

PATIENT
  Age: 82 Year
  Sex: Female

DRUGS (2)
  1. TRILEPTAL [Suspect]
     Indication: CONVULSION
     Dosage: SEE IMAGE
  2. ARICEPT [Concomitant]

REACTIONS (2)
  - DYSKINESIA [None]
  - FALL [None]
